FAERS Safety Report 21463426 (Version 1)
Quarter: 2022Q4

REPORT INFORMATION
  Report Type: Spontaneous
  Country: US (occurrence: US)
  Receive Date: 20221017
  Receipt Date: 20221017
  Transmission Date: 20230113
  Serious: No
  Sender: FDA-Public Use
  Company Number: US-SA-SAC20221011000953

PATIENT
  Sex: Male

DRUGS (1)
  1. DUPIXENT [Suspect]
     Active Substance: DUPILUMAB
     Dosage: 200 MG, FREQUENCY-OTHER
     Route: 058

REACTIONS (5)
  - Viral infection [Recovering/Resolving]
  - Illness [Recovering/Resolving]
  - Pyrexia [Recovering/Resolving]
  - Injection site pain [Unknown]
  - Dry eye [Unknown]
